FAERS Safety Report 6667452-8 (Version None)
Quarter: 2010Q2

REPORT INFORMATION
  Report Type: 
  Country: None (occurrence: None)
  Receive Date: 20100405
  Receipt Date: 20100330
  Transmission Date: 20101027
  Serious: Yes (Other)
  Sender: FDA-Public Use
  Company Number: US-ROCHE-686318

PATIENT
  Age: 66 Year
  Sex: Female

DRUGS (5)
  1. HERCEPTIN [Suspect]
     Indication: BREAST CANCER
     Route: 042
  2. HERCEPTIN [Suspect]
     Route: 042
  3. AVASTIN [Suspect]
     Indication: DRUG USE FOR UNKNOWN INDICATION
     Route: 065
  4. NAVELBINE [Suspect]
     Indication: BREAST CANCER
     Dosage: FREQ: EVERY OTHER WEEK
     Route: 042
  5. NAVELBINE [Suspect]
     Route: 042

REACTIONS (3)
  - DRUG INEFFECTIVE [None]
  - METASTASIS [None]
  - TUMOUR MARKER INCREASED [None]
